FAERS Safety Report 11290611 (Version 3)
Quarter: 2020Q3

REPORT INFORMATION
  Report Type: Spontaneous
  Country: US (occurrence: US)
  Receive Date: 20150722
  Receipt Date: 20200727
  Transmission Date: 20201102
  Serious: Yes (Hospitalization, Other)
  Sender: FDA-Public Use
  Company Number: US-AUROBINDO-AUR-APL-2015-06237

PATIENT
  Age: 41 Year
  Sex: Female
  Weight: 84 kg

DRUGS (14)
  1. CYCLOBENZAPRINE. [Suspect]
     Active Substance: CYCLOBENZAPRINE
     Dosage: 10 MG, Q.H.S.
     Route: 065
  2. GABAPENTIN. [Concomitant]
     Active Substance: GABAPENTIN
     Indication: PRODUCT USED FOR UNKNOWN INDICATION
     Dosage: 800 MILLIGRAM, 3 TIMES A DAY
     Route: 065
  3. CARISOPRODOL 350 MG [Suspect]
     Active Substance: CARISOPRODOL
     Indication: PRODUCT USED FOR UNKNOWN INDICATION
     Dosage: 350 MILLIGRAM, 3 TIMES A DAY
     Route: 065
  4. DULOXETINE. [Suspect]
     Active Substance: DULOXETINE
     Indication: DEPRESSION
     Dosage: 60 MILLIGRAM, DAILY
  5. AMITRIPTYLINE [Suspect]
     Active Substance: AMITRIPTYLINE
     Indication: PRODUCT USED FOR UNKNOWN INDICATION
     Dosage: 50 MILLIGRAM, DAILY
     Route: 065
  6. AMITRIPTYLINE [Suspect]
     Active Substance: AMITRIPTYLINE
     Dosage: 25 MILLIGRAM AT NIGHTTIME
     Route: 065
  7. TRAMADOL 50MG [Suspect]
     Active Substance: TRAMADOL
     Dosage: 50 MG, QD
     Route: 065
  8. TRAMADOL 50MG [Suspect]
     Active Substance: TRAMADOL
     Dosage: 150 MILLIGRAM, DAILY
     Route: 065
  9. CETIRIZINE [Concomitant]
     Active Substance: CETIRIZINE HYDROCHLORIDE
     Indication: PRODUCT USED FOR UNKNOWN INDICATION
     Dosage: 10 MILLIGRAM, DAILY
     Route: 065
  10. DULOXETINE. [Suspect]
     Active Substance: DULOXETINE
     Dosage: 120 MG, Q.H.S.
     Route: 065
  11. GABAPENTIN. [Concomitant]
     Active Substance: GABAPENTIN
     Dosage: 300 UNK, UNK
     Route: 065
  12. CYCLOBENZAPRINE. [Suspect]
     Active Substance: CYCLOBENZAPRINE
     Indication: MUSCLE SPASMS
     Dosage: 5 MG, Q.H.S.
     Route: 065
  13. DULOXETINE. [Suspect]
     Active Substance: DULOXETINE
     Dosage: 120 MILLIGRAM AT BEDTIME
     Route: 065
  14. TRAMADOL 50MG [Suspect]
     Active Substance: TRAMADOL
     Indication: PAIN
     Dosage: 50 MILLIGRAM, FOUR TIMES/DAY
     Route: 065

REACTIONS (13)
  - Condition aggravated [Recovering/Resolving]
  - Akathisia [Recovered/Resolved]
  - Mydriasis [Recovering/Resolving]
  - Tremor [Recovered/Resolved]
  - Hoffmann^s sign [Recovered/Resolved]
  - Mucosal dryness [Recovering/Resolving]
  - Serotonin syndrome [Recovering/Resolving]
  - Clonus [Recovering/Resolving]
  - Insomnia [Recovering/Resolving]
  - Neck pain [Recovering/Resolving]
  - Hyperreflexia [Recovering/Resolving]
  - Dry mouth [Recovering/Resolving]
  - Muscle twitching [Recovering/Resolving]
